FAERS Safety Report 9907361 (Version 1)
Quarter: 2014Q1

REPORT INFORMATION
  Report Type: Spontaneous
  Country: US (occurrence: US)
  Receive Date: 20140218
  Receipt Date: 20140218
  Transmission Date: 20141002
  Serious: Yes (Other)
  Sender: FDA-Public Use
  Company Number: US-RB-063509-14

PATIENT
  Age: 31 Year
  Sex: Male

DRUGS (2)
  1. SUBOXONE TABLET [Suspect]
     Indication: DRUG DEPENDENCE
     Dosage: THE PATIENT WAS TAKING 12-16 MG DAILY
     Route: 060
     Dates: start: 2007
  2. SUBOXONE FILM [Suspect]
     Indication: DRUG DEPENDENCE
     Dosage: SUBOXONE FILM; THE PATIENT WAS TAKING 12-16 MG DAILY
     Route: 060

REACTIONS (6)
  - Wrong technique in drug usage process [Not Recovered/Not Resolved]
  - Road traffic accident [Recovered/Resolved]
  - Rib fracture [Recovered/Resolved]
  - Neck pain [Recovered/Resolved]
  - Condition aggravated [Recovered/Resolved]
  - Back pain [Recovered/Resolved]
